FAERS Safety Report 25592474 (Version 2)
Quarter: 2025Q3

REPORT INFORMATION
  Report Type: Spontaneous
  Country: EU (occurrence: EU)
  Receive Date: 20250722
  Receipt Date: 20250826
  Transmission Date: 20251020
  Serious: Yes (Congenital Anomaly)
  Sender: DUCHESNAY
  Company Number: EU-EXELTIS PHARMACEUTICAL HOLDING, S.L.-2507SK05797

PATIENT

DRUGS (1)
  1. DOXYLAMINE SUCCINATE\PYRIDOXINE HYDROCHLORIDE [Suspect]
     Active Substance: DOXYLAMINE SUCCINATE\PYRIDOXINE HYDROCHLORIDE
     Indication: Foetal exposure during pregnancy
     Dosage: 2 TIMES DAILY, DOSE UNKNOWN
     Route: 064

REACTIONS (2)
  - Cerebral ventricle dilatation [Not Recovered/Not Resolved]
  - Cerebral haemorrhage foetal [Not Recovered/Not Resolved]
